FAERS Safety Report 23333090 (Version 2)
Quarter: 2025Q4

REPORT INFORMATION
  Report Type: Spontaneous
  Country: US (occurrence: US)
  Receive Date: 20231222
  Receipt Date: 20251103
  Transmission Date: 20260117
  Serious: Yes (Other)
  Sender: PFIZER
  Company Number: US-PFIZER INC-PV202300202408

PATIENT
  Age: 78 Year
  Sex: Male
  Weight: 72.3 kg

DRUGS (4)
  1. IBRANCE [Suspect]
     Active Substance: PALBOCICLIB
     Indication: Breast cancer male
     Dosage: TAKE 1 TABLET DAILY ON DAYS 1-21 OF 28 DAY CYCLE
     Route: 048
  2. IBRANCE [Suspect]
     Active Substance: PALBOCICLIB
     Dosage: 125 MG
  3. LUPRON [Suspect]
     Active Substance: LEUPROLIDE ACETATE
     Indication: Breast cancer male
  4. LETROZOLE [Suspect]
     Active Substance: LETROZOLE
     Indication: Breast cancer male

REACTIONS (2)
  - Breast cancer male [Unknown]
  - Malignant neoplasm progression [Unknown]
